FAERS Safety Report 6588833-7 (Version None)
Quarter: 2010Q1

REPORT INFORMATION
  Report Type: 
  Country: None (occurrence: None)
  Receive Date: 20100218
  Receipt Date: 20100212
  Transmission Date: 20100710
  Serious: Yes (Congenital Anomaly)
  Sender: FDA-Public Use
  Company Number: A0842857A

PATIENT
  Sex: Female

DRUGS (5)
  1. COMBIVIR [Suspect]
     Indication: ANTIRETROVIRAL THERAPY
     Dosage: 2TABS PER DAY
     Dates: start: 20070319
  2. RETROVIR [Suspect]
     Indication: ANTIRETROVIRAL THERAPY
     Dosage: 1708MGD PER DAY
     Dates: start: 20100109, end: 20100109
  3. INVIRASE [Suspect]
     Indication: ANTIRETROVIRAL THERAPY
     Dosage: 2000MGD PER DAY
     Dates: start: 20070319, end: 20090924
  4. NORVIR [Suspect]
     Indication: ANTIRETROVIRAL THERAPY
     Dosage: 200MGD PER DAY
     Dates: start: 20090319, end: 20090924
  5. VIRACEPT [Suspect]
     Indication: ANTIRETROVIRAL THERAPY
     Dosage: 2500MGD PER DAY
     Dates: start: 20090924

REACTIONS (5)
  - CONGENITAL NAIL DISORDER [None]
  - DRUG EXPOSURE DURING PREGNANCY [None]
  - ILL-DEFINED DISORDER [None]
  - MATERNAL DEATH AFFECTING FOETUS [None]
  - NAIL DISORDER [None]
